FAERS Safety Report 6918552-6 (Version None)
Quarter: 2010Q3

REPORT INFORMATION
  Report Type: 
  Country: None (occurrence: None)
  Receive Date: 20100811
  Receipt Date: 20100804
  Transmission Date: 20110219
  Serious: Yes (Other)
  Sender: FDA-Public Use
  Company Number: US-JNJFOC-20100801107

PATIENT
  Sex: Female

DRUGS (2)
  1. CHILDREN'S MOTRIN [Suspect]
  2. CHILDREN'S MOTRIN [Suspect]
     Indication: SINUSITIS

REACTIONS (3)
  - IRRITABLE BOWEL SYNDROME [None]
  - PRODUCT QUALITY ISSUE [None]
  - PYREXIA [None]
